FAERS Safety Report 9225715 (Version 4)
Quarter: 2013Q3

REPORT INFORMATION
  Report Type: Report from Study
  Country: JP (occurrence: JP)
  Receive Date: 20130411
  Receipt Date: 20130704
  Transmission Date: 20140515
  Serious: No
  Sender: FDA-Public Use
  Company Number: JP-ELI_LILLY_AND_COMPANY-JP201304000068

PATIENT
  Age: 85 Year
  Sex: Female

DRUGS (1)
  1. TERIPARATIDE [Suspect]
     Route: 058

REACTIONS (4)
  - Frequent bowel movements [Unknown]
  - Abdominal pain [Unknown]
  - Abdominal distension [Unknown]
  - Palpitations [Unknown]
